FAERS Safety Report 8349409-4 (Version None)
Quarter: 2012Q2

REPORT INFORMATION
  Report Type: 
  Country: None (occurrence: None)
  Receive Date: 20120510
  Receipt Date: 20100820
  Transmission Date: 20120825
  Serious: No
  Sender: FDA-Public Use
  Company Number: US-TEVA-2010004452

PATIENT
  Sex: Female
  Weight: 113.5 kg

DRUGS (3)
  1. NUVIGIL [Suspect]
     Indication: ASTHENIA
     Dosage: 150 MILLIGRAM;
     Route: 048
     Dates: start: 20100818
  2. ULTRAM [Concomitant]
     Indication: ARTHRITIS
     Dates: start: 20100818
  3. NEURONTIN [Concomitant]
     Indication: HYPOAESTHESIA
     Dates: start: 20080101

REACTIONS (1)
  - ARTHRALGIA [None]
